FAERS Safety Report 10156574 (Version 1)
Quarter: 2014Q2

REPORT INFORMATION
  Report Type: Spontaneous
  Country: US (occurrence: None)
  Receive Date: 20140506
  Receipt Date: 20140506
  Transmission Date: 20141212
  Serious: Yes (Hospitalization)
  Sender: FDA-Public Use
  Company Number: None

PATIENT
  Age: 75 Year
  Sex: Female

DRUGS (1)
  1. PROTHROMBIN COMPLEX CONCENTRATE NOS [Suspect]
     Indication: HAEMORRHAGE
     Dosage: 290D
     Route: 042
     Dates: start: 20130403, end: 20130403

REACTIONS (3)
  - Cerebrovascular accident [None]
  - Intracranial aneurysm [None]
  - Pulmonary embolism [None]
